FAERS Safety Report 7642401-4 (Version None)
Quarter: 2011Q3

REPORT INFORMATION
  Report Type: 
  Country: None (occurrence: None)
  Receive Date: 20110728
  Receipt Date: 20100718
  Transmission Date: 20111222
  Serious: No
  Sender: FDA-Public Use
  Company Number: US-MYLANLABS-2010S1012886

PATIENT
  Age: 61 Year
  Sex: Female

DRUGS (5)
  1. LEVOTHYROXINE SODIUM [Suspect]
     Indication: HYPOTHYROIDISM
     Route: 048
     Dates: start: 20070101
  2. GLUCOSAMINE [Concomitant]
  3. VITAMIN TAB [Concomitant]
  4. COGENTIN [Concomitant]
  5. PRILOSEC [Concomitant]

REACTIONS (2)
  - INCREASED TENDENCY TO BRUISE [None]
  - SKIN FRAGILITY [None]
